FAERS Safety Report 11053692 (Version 1)
Quarter: 2015Q2

REPORT INFORMATION
  Report Type: Spontaneous
  Country: US (occurrence: US)
  Receive Date: 20150421
  Receipt Date: 20150421
  Transmission Date: 20150821
  Serious: Yes (Other)
  Sender: FDA-Public Use
  Company Number: PHEH2014US023155

PATIENT
  Age: 78 Year
  Sex: Male
  Weight: 55 kg

DRUGS (3)
  1. EXELON PATCH [Suspect]
     Active Substance: RIVASTIGMINE
     Indication: DEMENTIA ALZHEIMER^S TYPE
     Dosage: 4.6 MG/24 HOURS, (5 CM2)
     Route: 062
     Dates: start: 20140128
  2. EXELON PATCH [Suspect]
     Active Substance: RIVASTIGMINE
     Indication: DEMENTIA
     Dosage: 4.6 MG/24 HOURS, (5 CM2) PER DAY
     Route: 062
     Dates: start: 20140226
  3. EXELON PATCH [Suspect]
     Active Substance: RIVASTIGMINE
     Indication: MEMORY IMPAIRMENT
     Dosage: APPLIED 3 PATCHES 4.6 MG/24 HOURS, (5 CM2)
     Route: 062

REACTIONS (6)
  - Sedation [Recovered/Resolved]
  - Drug administration error [Recovered/Resolved]
  - Aggression [Recovered/Resolved]
  - Somnolence [Recovered/Resolved]
  - Confusional state [Unknown]
  - Unresponsive to stimuli [Recovered/Resolved]

NARRATIVE: CASE EVENT DATE: 20141006
